FAERS Safety Report 18337080 (Version 1)
Quarter: 2020Q4

REPORT INFORMATION
  Report Type: Spontaneous
  Country: US (occurrence: US)
  Receive Date: 20201002
  Receipt Date: 20201002
  Transmission Date: 20210113
  Serious: No
  Sender: FDA-Public Use
  Company Number: US-MELINTA THERAPEUTICS, INC-US-MLNT-20-00065

PATIENT
  Sex: Female

DRUGS (2)
  1. ORBACTIV [Suspect]
     Active Substance: ORITAVANCIN
     Indication: DIABETIC FOOT INFECTION
     Route: 041
  2. ORBACTIV [Suspect]
     Active Substance: ORITAVANCIN
     Indication: CELLULITIS

REACTIONS (2)
  - Headache [Unknown]
  - Dizziness [Unknown]
